FAERS Safety Report 24623048 (Version 1)
Quarter: 2024Q4

REPORT INFORMATION
  Report Type: Report from Study
  Country: NL (occurrence: NL)
  Receive Date: 20241115
  Receipt Date: 20241115
  Transmission Date: 20250114
  Serious: Yes (Death, Other)
  Sender: ACCORD
  Company Number: NL-EMA-DD-20241017-7482715-130916

PATIENT
  Age: 53 Year
  Sex: Male

DRUGS (6)
  1. ETOPOSIDE [Suspect]
     Active Substance: ETOPOSIDE
     Indication: Haemophagocytic lymphohistiocytosis
     Dosage: UNK
  2. CYCLOSPORINE [Suspect]
     Active Substance: CYCLOSPORINE
     Indication: Haemophagocytic lymphohistiocytosis
     Dosage: UNK
  3. DEXAMETHASONE [Suspect]
     Active Substance: DEXAMETHASONE
     Indication: Haemophagocytic lymphohistiocytosis
     Dosage: UNK
  4. INFLIXIMAB [Suspect]
     Active Substance: INFLIXIMAB
     Indication: Haemophagocytic lymphohistiocytosis
     Dosage: UNK
  5. RITUXIMAB [Suspect]
     Active Substance: RITUXIMAB
     Indication: Autoimmune neutropenia
  6. RUXOLITINIB [Suspect]
     Active Substance: RUXOLITINIB
     Indication: Haemophagocytic lymphohistiocytosis
     Dosage: UNK

REACTIONS (1)
  - Septic shock [Fatal]
